FAERS Safety Report 11805187 (Version 1)
Quarter: 2015Q4

REPORT INFORMATION
  Report Type: Spontaneous
  Country: US (occurrence: None)
  Receive Date: 20151203
  Receipt Date: 20151203
  Transmission Date: 20160305
  Serious: Yes (Life-Threatening)
  Sender: FDA-Public Use
  Company Number: None

PATIENT
  Age: 63 Year
  Sex: Female
  Weight: 85 kg

DRUGS (1)
  1. CARBOPLATIN. [Suspect]
     Active Substance: CARBOPLATIN
     Indication: VAGINAL NEOPLASM
     Dates: start: 20111213, end: 20140212

REACTIONS (7)
  - Rash [None]
  - Hypersensitivity [None]
  - Dizziness [None]
  - Dyspnoea [None]
  - Anaphylactic reaction [None]
  - Throat tightness [None]
  - Erythema [None]

NARRATIVE: CASE EVENT DATE: 20140212
